FAERS Safety Report 4217545 (Version 4)
Quarter: 2013Q3

REPORT INFORMATION
  Report Type: Spontaneous
  Country: CA (occurrence: CA)
  Receive Date: 20040917
  Receipt Date: 20130822
  Transmission Date: 20140515
  Serious: Yes (Hospitalization)
  Sender: FDA-Public Use
  Company Number: CA-ABBOTT-04P-028-0272719-00

PATIENT
  Age: 52 Year
  Sex: Female

DRUGS (37)
  1. EPIVAL [Suspect]
     Indication: DEPRESSION
     Route: 048
     Dates: start: 20040217, end: 20040821
  2. EPIVAL [Suspect]
     Route: 048
     Dates: start: 20040217, end: 20040821
  3. EPIVAL [Suspect]
     Dates: start: 20040614
  4. TIPRANAVIR [Suspect]
     Indication: HIV INFECTION
     Route: 048
     Dates: start: 20020626, end: 20040821
  5. PROCYCLIDINE [Suspect]
     Indication: PROPHYLAXIS
     Route: 048
     Dates: start: 20040322, end: 20040821
  6. OLANZAPINE [Suspect]
     Indication: PSYCHOTIC DISORDER
     Route: 048
     Dates: start: 20030214, end: 20040821
  7. OLANZAPINE [Suspect]
     Route: 048
     Dates: start: 20030214, end: 20040821
  8. RISPERIDONE [Suspect]
     Indication: PSYCHOTIC DISORDER
     Route: 048
     Dates: start: 20040706, end: 20040821
  9. TRAZODONE [Suspect]
     Indication: DEPRESSION
     Route: 048
     Dates: start: 20040614, end: 20040728
  10. TRAZODONE [Suspect]
     Route: 048
     Dates: end: 20040821
  11. SEROQUEL [Suspect]
     Indication: PSYCHOTIC DISORDER
     Route: 048
     Dates: start: 20040729, end: 20040821
  12. CLONAZEPAM [Suspect]
     Indication: HYPOMANIA
     Route: 048
     Dates: end: 20040712
  13. TEGRETOL [Suspect]
     Indication: HYPOMANIA
     Dates: start: 20040707, end: 20040716
  14. ACETAMINOPHEN [Suspect]
     Indication: PAIN IN EXTREMITY
     Dosage: 1 IN 4 H, AS REQUIRED
     Route: 048
     Dates: start: 20021211, end: 20040914
  15. ACETAMINOPHEN [Suspect]
     Indication: HEADACHE
  16. 3TC [Concomitant]
     Indication: HIV INFECTION
     Route: 048
     Dates: start: 20040419, end: 20040821
  17. 3TC [Concomitant]
     Dates: start: 20040910, end: 20040914
  18. ABACAVIR [Concomitant]
     Indication: HIV INFECTION
     Route: 048
     Dates: start: 20040419, end: 20040821
  19. ABACAVIR [Concomitant]
     Dates: start: 20040910, end: 20040914
  20. ATOVAQUONE [Concomitant]
     Indication: ANTIFUNGAL PROPHYLAXIS
     Route: 048
     Dates: start: 20040407, end: 20040821
  21. ATOVAQUONE [Concomitant]
     Dates: start: 20040825, end: 20040912
  22. CALCIUM CARBONATE [Concomitant]
     Indication: DIARRHOEA
     Route: 048
     Dates: start: 20010216, end: 20040912
  23. MAGIC MOUTHWASH [Concomitant]
     Indication: ORAL CANDIDIASIS
     Dates: start: 20040220, end: 20040912
  24. NYSTATIN [Concomitant]
     Indication: ORAL CANDIDIASIS
     Dosage: 4 IN 1 D, AS REQUIRED
     Route: 048
     Dates: start: 19921201, end: 20040912
  25. MEGAVIM [Concomitant]
     Indication: VITAMIN SUPPLEMENTATION
     Route: 048
     Dates: end: 20040821
  26. ENFUVIRTIDE [Concomitant]
     Indication: HIV INFECTION
     Route: 058
     Dates: start: 20040419
  27. ENFUVIRTIDE [Concomitant]
     Dates: start: 20040911, end: 20040914
  28. BISACODYL [Concomitant]
     Indication: CONSTIPATION
     Dates: end: 20040914
  29. BISACODYL [Concomitant]
  30. CHORAL HYDRATE [Concomitant]
     Indication: PRODUCT USED FOR UNKNOWN INDICATION
  31. LACTULOSE [Concomitant]
     Indication: CONSTIPATION
     Dates: start: 20040217, end: 20040914
  32. IMODIUM [Concomitant]
     Indication: DIARRHOEA
     Dates: start: 20000823, end: 20040914
  33. BENADRYL [Concomitant]
     Indication: NAUSEA
     Dosage: 25-50 MG, 1 IN 6 H
     Route: 042
  34. BENADRYL [Concomitant]
     Dosage: 25-50 MG, 1 IN 6 H
     Route: 048
  35. BENADRYL [Concomitant]
     Dosage: 25-50 MG, 1 IN 6 H
     Route: 030
  36. KALETRA [Concomitant]
     Indication: HIV INFECTION
     Dates: start: 20040911, end: 20040914
  37. LITHIUM [Concomitant]
     Indication: HYPOMANIA
     Dates: start: 20040910, end: 20040914

REACTIONS (12)
  - Hypomania [Recovered/Resolved]
  - Condition aggravated [Recovered/Resolved]
  - Schizophrenia [Unknown]
  - Jaundice cholestatic [Unknown]
  - Cholelithiasis [Recovered/Resolved]
  - Pneumonia [Unknown]
  - Hepatic enzyme increased [Recovered/Resolved]
  - Psychotic disorder [Unknown]
  - Nausea [Unknown]
  - Vomiting [Unknown]
  - Blood bilirubin increased [Unknown]
  - Hepatotoxicity [Unknown]
